FAERS Safety Report 10476983 (Version 3)
Quarter: 2014Q4

REPORT INFORMATION
  Report Type: Spontaneous
  Country: JP (occurrence: JP)
  Receive Date: 20140926
  Receipt Date: 20141014
  Transmission Date: 20150528
  Serious: No
  Sender: FDA-Public Use
  Company Number: JP-BIOGENIDEC-2014BI092704

PATIENT
  Age: 37 Year
  Sex: Male

DRUGS (8)
  1. AVONEX [Suspect]
     Active Substance: INTERFERON BETA-1A
     Indication: MULTIPLE SCLEROSIS
     Route: 030
     Dates: start: 20140701, end: 20140701
  2. AVONEX [Suspect]
     Active Substance: INTERFERON BETA-1A
     Indication: MULTIPLE SCLEROSIS
     Route: 030
     Dates: start: 20140722, end: 20140828
  3. AVONEX [Suspect]
     Active Substance: INTERFERON BETA-1A
     Indication: MULTIPLE SCLEROSIS
     Route: 030
     Dates: start: 20140715, end: 20140715
  4. LATANOPROST. [Concomitant]
     Active Substance: LATANOPROST
  5. AVONEX [Suspect]
     Active Substance: INTERFERON BETA-1A
     Indication: MULTIPLE SCLEROSIS
     Route: 030
     Dates: start: 20140708, end: 20140708
  6. AMLODIPINE [Concomitant]
     Active Substance: AMLODIPINE BESYLATE
  7. TIMOPTOL-XE [Concomitant]
     Active Substance: TIMOLOL
  8. NIPRADILOL [Concomitant]
     Active Substance: NIPRADILOL

REACTIONS (2)
  - Retinal haemorrhage [Unknown]
  - Retinitis [Unknown]

NARRATIVE: CASE EVENT DATE: 20140828
